FAERS Safety Report 4277389-X (Version None)
Quarter: 2004Q1

REPORT INFORMATION
  Report Type: 
  Country: None (occurrence: None)
  Receive Date: 20040122
  Receipt Date: 20040106
  Transmission Date: 20041129
  Serious: Yes (Hospitalization, Other)
  Sender: FDA-Public Use
  Company Number: 200410064FR

PATIENT
  Age: 80 Year
  Sex: Male
  Weight: 43 kg

DRUGS (9)
  1. ARAVA [Suspect]
     Indication: RHEUMATOID ARTHRITIS
     Route: 048
     Dates: end: 20040101
  2. CORTANCYL [Concomitant]
     Indication: RHEUMATOID ARTHRITIS
     Route: 048
  3. DI-ANTALVIC [Concomitant]
     Route: 048
  4. MOPRAL [Concomitant]
  5. DIGOXIN [Concomitant]
     Route: 048
  6. CORDARONE [Concomitant]
  7. DIAFUSOR [Concomitant]
     Route: 062
  8. DEROXAT [Concomitant]
     Indication: DEPRESSION
     Route: 048
  9. FORLAX [Concomitant]
     Route: 048

REACTIONS (12)
  - ANOREXIA [None]
  - DEPRESSION [None]
  - DRUG INTOLERANCE [None]
  - GASTROINTESTINAL DISORDER [None]
  - GENERAL PHYSICAL HEALTH DETERIORATION [None]
  - HYPOALBUMINAEMIA [None]
  - NAUSEA [None]
  - PLATELET COUNT DECREASED [None]
  - PROSTATIC ADENOMA [None]
  - RENAL FAILURE [None]
  - VOMITING [None]
  - WEIGHT DECREASED [None]
